FAERS Safety Report 4814596-9 (Version None)
Quarter: 2005Q4

REPORT INFORMATION
  Report Type: 
  Country: None (occurrence: None)
  Receive Date: 20051028
  Receipt Date: 20051025
  Transmission Date: 20060501
  Serious: Yes (Other)
  Sender: FDA-Public Use
  Company Number: US-GLAXOSMITHKLINE-A0579559A

PATIENT
  Age: 27 Year
  Sex: Female

DRUGS (2)
  1. THORAZINE [Suspect]
     Indication: DRUG USE FOR UNKNOWN INDICATION
     Route: 065
     Dates: start: 19990120, end: 19990126
  2. NO CONCURRENT MEDICATION [Concomitant]

REACTIONS (8)
  - AMNESIA [None]
  - INFLUENZA [None]
  - LOSS OF CONSCIOUSNESS [None]
  - MONOPLEGIA [None]
  - MULTIPLE SCLEROSIS [None]
  - OVERDOSE [None]
  - PARKINSON'S DISEASE [None]
  - POST-TRAUMATIC STRESS DISORDER [None]
